FAERS Safety Report 8789331 (Version 1)
Quarter: 2012Q4

REPORT INFORMATION
  Report Type: Spontaneous
  Country: US (occurrence: None)
  Receive Date: 20120905
  Receipt Date: 20120905
  Transmission Date: 20130627
  Serious: Yes (Hospitalization, Other)
  Sender: FDA-Public Use
  Company Number: 2012MA010369

PATIENT
  Age: 64 Year
  Sex: Male

DRUGS (4)
  1. CITALOPRAM HYDROBROMIDE [Suspect]
  2. ARIPIPRAZOLE [Concomitant]
  3. ANTIHYPERTENSIVE [Concomitant]
  4. STATIN [Concomitant]

REACTIONS (12)
  - Agitation [None]
  - Hyperhidrosis [None]
  - Tremor [None]
  - Nausea [None]
  - Somnolence [None]
  - Yawning [None]
  - Dizziness [None]
  - Vertigo [None]
  - Chromatopsia [None]
  - Blood pressure fluctuation [None]
  - Urinary retention [None]
  - Cogwheel rigidity [None]
